FAERS Safety Report 14334331 (Version 1)
Quarter: 2017Q4

REPORT INFORMATION
  Report Type: Spontaneous
  Country: AU (occurrence: AU)
  Receive Date: 20171228
  Receipt Date: 20171228
  Transmission Date: 20180321
  Serious: Yes (Other)
  Sender: FDA-Public Use
  Company Number: AU-PFIZER INC-2017531334

PATIENT
  Sex: Female

DRUGS (1)
  1. METHOTREXATE. [Suspect]
     Active Substance: METHOTREXATE
     Dosage: UNK

REACTIONS (4)
  - Condition aggravated [Unknown]
  - Eczema [Unknown]
  - Nausea [Unknown]
  - Psoriatic arthropathy [Unknown]
